FAERS Safety Report 5352548-3 (Version None)
Quarter: 2007Q2

REPORT INFORMATION
  Report Type: 
  Country: None (occurrence: None)
  Receive Date: 20070611
  Receipt Date: 20070529
  Transmission Date: 20071010
  Serious: Yes (Death, Hospitalization)
  Sender: FDA-Public Use
  Company Number: CA-ROCHE-488285

PATIENT
  Age: 53 Year
  Sex: Female
  Weight: 100 kg

DRUGS (10)
  1. PEGASYS [Suspect]
     Indication: HEPATITIS C
     Route: 058
     Dates: start: 20070123, end: 20070309
  2. COPEGUS [Suspect]
     Indication: HEPATITIS C
     Route: 048
     Dates: start: 20070123, end: 20070309
  3. SPIRONOLACTONE [Concomitant]
     Indication: ASCITES
     Route: 048
     Dates: start: 20061109, end: 20061109
  4. OXYBUTYNIN CHLORIDE [Concomitant]
     Dates: end: 20070309
  5. CELEXA [Concomitant]
     Indication: DEPRESSION
     Route: 048
     Dates: start: 20060101, end: 20070309
  6. FUROSEMIDE [Concomitant]
     Indication: ASCITES
     Route: 048
     Dates: start: 20061109
  7. PARIET [Concomitant]
     Route: 048
  8. AMITRIPTYLINE HCL [Concomitant]
     Indication: DEPRESSION
     Route: 048
     Dates: start: 20060101
  9. FOLIC ACID [Concomitant]
     Route: 048
  10. CONJUGATED ESTROGENS [Concomitant]
     Route: 048

REACTIONS (1)
  - BRONCHOPNEUMONIA [None]
